FAERS Safety Report 4984527-X (Version None)
Quarter: 2006Q2

REPORT INFORMATION
  Report Type: 
  Country: None (occurrence: None)
  Receive Date: 20060421
  Receipt Date: 20060408
  Transmission Date: 20061013
  Serious: Yes (Life-Threatening)
  Sender: FDA-Public Use
  Company Number: GXKR2006DE02006

PATIENT
  Age: 33 Year
  Sex: Male

DRUGS (2)
  1. TERFENADINE [Suspect]
     Indication: CONJUNCTIVITIS ALLERGIC
  2. ITRACONAZOLE [Suspect]
     Indication: ONYCHOMYCOSIS
     Dosage: 200 MG, BID

REACTIONS (3)
  - DRUG INTERACTION [None]
  - LOSS OF CONSCIOUSNESS [None]
  - TORSADE DE POINTES [None]
